FAERS Safety Report 8362482-2 (Version None)
Quarter: 2012Q2

REPORT INFORMATION
  Report Type: 
  Country: None (occurrence: None)
  Receive Date: 20120514
  Receipt Date: 20120514
  Transmission Date: 20120825
  Serious: Yes (Other)
  Sender: FDA-Public Use
  Company Number: None

PATIENT
  Sex: Female
  Weight: 61.2356 kg

DRUGS (2)
  1. BOTOX [Suspect]
     Indication: SKIN WRINKLING
     Dosage: 36 UNITS ONCE CUTANEOUS
     Route: 003
  2. BOTOX [Suspect]
     Indication: SKIN WRINKLING
     Dosage: 16 UNITS ONCE CUTANEOUS
     Route: 003
     Dates: start: 20120426, end: 20120426

REACTIONS (11)
  - DRY EYE [None]
  - MUSCULOSKELETAL STIFFNESS [None]
  - INSOMNIA [None]
  - CONTUSION [None]
  - PHOTOSENSITIVITY REACTION [None]
  - NECK PAIN [None]
  - INFLUENZA [None]
  - HEADACHE [None]
  - FEELING ABNORMAL [None]
  - IRRITABILITY [None]
  - EYE IRRITATION [None]
